FAERS Safety Report 9331096 (Version 1)
Quarter: 2013Q2

REPORT INFORMATION
  Report Type: Spontaneous
  Country: JP (occurrence: JP)
  Receive Date: 20130605
  Receipt Date: 20130605
  Transmission Date: 20140414
  Serious: Yes (Death)
  Sender: FDA-Public Use
  Company Number: JP-BRISTOL-MYERS SQUIBB COMPANY-18970897

PATIENT
  Age: 81 Year
  Sex: Female

DRUGS (2)
  1. TAXOL INJ [Suspect]
     Indication: BREAST CANCER
     Route: 041
     Dates: start: 20130521, end: 20130521
  2. JANUVIA [Concomitant]
     Dosage: TABS
     Route: 048

REACTIONS (1)
  - Cardiac arrest [Fatal]
